FAERS Safety Report 4520178-9 (Version None)
Quarter: 2004Q4

REPORT INFORMATION
  Report Type: 
  Country: None (occurrence: None)
  Receive Date: 20041201
  Receipt Date: 20041201
  Transmission Date: 20050328
  Serious: Yes (Other)
  Sender: FDA-Public Use
  Company Number: None

PATIENT
  Sex: Male
  Weight: 87.0906 kg

DRUGS (2)
  1. SULFAMETHOXAZOLE 200 MG/TMP 160 G [Suspect]
     Indication: STAPHYLOCOCCAL INFECTION
     Dosage: ONE TWICE DAILY
  2. IODINE FOR DRESSING CHANGE [Concomitant]

REACTIONS (1)
  - RASH [None]
